FAERS Safety Report 5830287-X (Version None)
Quarter: 2008Q3

REPORT INFORMATION
  Report Type: 
  Country: None (occurrence: None)
  Receive Date: 20080801
  Receipt Date: 20080721
  Transmission Date: 20090109
  Serious: Yes (Hospitalization)
  Sender: FDA-Public Use
  Company Number: US-ELI_LILLY_AND_COMPANY-US200807005195

PATIENT
  Sex: Female
  Weight: 77.7 kg

DRUGS (7)
  1. TERIPARATIDE [Suspect]
     Indication: OSTEOPOROSIS
     Dosage: 20 UG, DAILY (1/D)
     Dates: start: 20080206
  2. VITAMIN D [Concomitant]
     Indication: OSTEOPOROSIS
     Dates: start: 20071204
  3. CALCIUM [Concomitant]
     Indication: OSTEOPOROSIS
     Dates: start: 20071204
  4. METOPROLOL [Concomitant]
     Indication: CARDIOMYOPATHY
     Dates: start: 20071218
  5. ENALAPRIL MALEATE [Concomitant]
     Indication: TACHYCARDIA
     Dates: start: 20071218
  6. LASIX [Concomitant]
     Indication: CARDIOMYOPATHY
     Dates: start: 20071218
  7. ASPIRIN [Concomitant]
     Indication: CARDIOMYOPATHY
     Dates: start: 20071218

REACTIONS (3)
  - CARDIOMYOPATHY [None]
  - CORONARY ARTERY DISEASE [None]
  - VISUAL IMPAIRMENT [None]
